FAERS Safety Report 14694766 (Version 1)
Quarter: 2018Q1

REPORT INFORMATION
  Report Type: Spontaneous
  Country: FR (occurrence: FR)
  Receive Date: 20180329
  Receipt Date: 20180329
  Transmission Date: 20180509
  Serious: Yes (Hospitalization)
  Sender: FDA-Public Use
  Company Number: FR-JNJFOC-20180324779

PATIENT
  Sex: Male

DRUGS (2)
  1. PARACETAMOL [Suspect]
     Active Substance: ACETAMINOPHEN
     Route: 065
  2. PARACETAMOL [Suspect]
     Active Substance: ACETAMINOPHEN
     Indication: ABDOMINAL PAIN UPPER
     Route: 065

REACTIONS (6)
  - Nausea [Unknown]
  - Weight decreased [Unknown]
  - Diarrhoea [Unknown]
  - Movement disorder [Unknown]
  - Condition aggravated [Unknown]
  - Staring [Unknown]
